FAERS Safety Report 8100751-1 (Version None)
Quarter: 2012Q1

REPORT INFORMATION
  Report Type: 
  Country: None (occurrence: None)
  Receive Date: 20120129
  Receipt Date: 20110928
  Transmission Date: 20120608
  Serious: No
  Sender: FDA-Public Use
  Company Number: US-ABBOTT-11P-163-0858998-00

PATIENT
  Age: 78 Year
  Sex: Female

DRUGS (6)
  1. HUMIRA [Suspect]
     Indication: RHEUMATOID ARTHRITIS
     Dosage: INTERRUPTED
     Dates: start: 20030101, end: 20110801
  2. ADALAT [Concomitant]
     Indication: HYPERTENSION
     Dates: start: 20010101
  3. DIAZAPAM [Concomitant]
     Indication: INSOMNIA
  4. METHOTREXATE [Concomitant]
     Indication: PRODUCT USED FOR UNKNOWN INDICATION
     Dosage: 3 PILLS WEEKLY
  5. FOLIC ACID [Concomitant]
     Indication: PRODUCT USED FOR UNKNOWN INDICATION
     Dosage: DAILY
  6. EQUANIL [Concomitant]
     Indication: ANXIETY
     Dosage: OFF AND ON AS NEEDED

REACTIONS (3)
  - HYPOTHYROIDISM [None]
  - BLOOD CHOLESTEROL INCREASED [None]
  - LOCALISED INFECTION [None]
